FAERS Safety Report 15471689 (Version 3)
Quarter: 2018Q4

REPORT INFORMATION
  Report Type: Report from Study
  Country: None (occurrence: US)
  Receive Date: 20181008
  Receipt Date: 20181031
  Transmission Date: 20190205
  Serious: Yes (Hospitalization, Other)
  Sender: FDA-Public Use
  Company Number: US-ABBVIE-18K-163-2509166-00

PATIENT
  Age: 79 Year
  Sex: Male
  Weight: 110.78 kg

DRUGS (1)
  1. HUMIRA [Suspect]
     Active Substance: ADALIMUMAB
     Indication: COLITIS ULCERATIVE
     Route: 058
     Dates: start: 20180811

REACTIONS (9)
  - Anaemia [Recovered/Resolved]
  - Blood count abnormal [Unknown]
  - Weight decreased [Unknown]
  - Faeces soft [Not Recovered/Not Resolved]
  - Haemoglobin abnormal [Unknown]
  - Intestinal perforation [Unknown]
  - Fatigue [Unknown]
  - Cardiac valve disease [Unknown]
  - Iron deficiency [Not Recovered/Not Resolved]

NARRATIVE: CASE EVENT DATE: 2018
